FAERS Safety Report 4325989-0 (Version None)
Quarter: 2004Q1

REPORT INFORMATION
  Report Type: 
  Country: None (occurrence: None)
  Receive Date: 20040329
  Receipt Date: 20040317
  Transmission Date: 20041129
  Serious: Yes (Life-Threatening)
  Sender: FDA-Public Use
  Company Number: GB-GLAXOSMITHKLINE-B0327125A

PATIENT
  Age: 48 Year
  Sex: Female

DRUGS (2)
  1. AMOXICILLIN [Suspect]
     Indication: TOOTH ABSCESS
     Dosage: 500MG UNKNOWN
     Route: 048
     Dates: start: 20040305
  2. DIHYDROCODEINE [Suspect]
     Indication: TOOTH ABSCESS
     Dosage: 30MG UNKNOWN
     Route: 048
     Dates: start: 20040305

REACTIONS (5)
  - DYSPNOEA [None]
  - EYE SWELLING [None]
  - FEELING ABNORMAL [None]
  - PARAESTHESIA [None]
  - RASH GENERALISED [None]
